FAERS Safety Report 15329326 (Version 1)
Quarter: 2018Q3

REPORT INFORMATION
  Report Type: Spontaneous
  Country: US (occurrence: US)
  Receive Date: 20180823
  Receipt Date: 20180823
  Transmission Date: 20181010
  Serious: Yes (Hospitalization)
  Sender: FDA-Public Use
  Company Number: None

PATIENT
  Age: 56 Year
  Sex: Male

DRUGS (2)
  1. LONSURF [Suspect]
     Active Substance: TIPIRACIL HYDROCHLORIDE\TRIFLURIDINE
     Indication: COLON CANCER
     Dosage: ?          OTHER FREQUENCY:BID DAYS 1?5 +8?12;?
     Route: 048
     Dates: start: 20180525
  2. LONSURF [Suspect]
     Active Substance: TIPIRACIL HYDROCHLORIDE\TRIFLURIDINE
     Indication: COLON CANCER
     Dosage: ?          OTHER FREQUENCY:BID DAYS1?5+8?12;?
     Route: 048
     Dates: start: 20180525

REACTIONS (6)
  - Pulmonary thrombosis [None]
  - Red blood cell abnormality [None]
  - White blood cell disorder [None]
  - Platelet count decreased [None]
  - Jaundice [None]
  - Escherichia infection [None]

NARRATIVE: CASE EVENT DATE: 20180818
